FAERS Safety Report 4359695-3 (Version None)
Quarter: 2004Q2

REPORT INFORMATION
  Report Type: 
  Country: None (occurrence: None)
  Receive Date: 20040512
  Receipt Date: 20040430
  Transmission Date: 20050107
  Serious: Yes (Death, Hospitalization, Other)
  Sender: FDA-Public Use
  Company Number: US-JNJFOC-20031002845

PATIENT
  Age: 76 Year
  Sex: Female
  Weight: 52.1637 kg

DRUGS (34)
  1. REMICADE [Suspect]
     Indication: RHEUMATOID ARTHRITIS
     Dosage: 300 MG, INTRAVENOUS (SEE IMAGE)
     Route: 042
     Dates: start: 20020606, end: 20020606
  2. REMICADE [Suspect]
     Indication: RHEUMATOID ARTHRITIS
     Dosage: 300 MG, INTRAVENOUS (SEE IMAGE)
     Route: 042
     Dates: start: 20000612
  3. REMICADE [Suspect]
     Indication: RHEUMATOID ARTHRITIS
     Dosage: 300 MG, INTRAVENOUS (SEE IMAGE)
     Route: 042
     Dates: start: 20000626
  4. REMICADE [Suspect]
     Indication: RHEUMATOID ARTHRITIS
     Dosage: 300 MG, INTRAVENOUS (SEE IMAGE)
     Route: 042
     Dates: start: 20000724
  5. REMICADE [Suspect]
     Indication: RHEUMATOID ARTHRITIS
     Dosage: 300 MG, INTRAVENOUS (SEE IMAGE)
     Route: 042
     Dates: start: 20000918
  6. REMICADE [Suspect]
     Indication: RHEUMATOID ARTHRITIS
     Dosage: 300 MG, INTRAVENOUS (SEE IMAGE)
     Route: 042
     Dates: start: 20001106
  7. REMICADE [Suspect]
     Indication: RHEUMATOID ARTHRITIS
     Dosage: 300 MG, INTRAVENOUS (SEE IMAGE)
     Route: 042
     Dates: start: 20010102
  8. REMICADE [Suspect]
     Indication: RHEUMATOID ARTHRITIS
     Dosage: 300 MG, INTRAVENOUS (SEE IMAGE)
     Route: 042
     Dates: start: 20010212
  9. REMICADE [Suspect]
     Indication: RHEUMATOID ARTHRITIS
     Dosage: 300 MG, INTRAVENOUS (SEE IMAGE)
     Route: 042
     Dates: start: 20010326
  10. REMICADE [Suspect]
     Indication: RHEUMATOID ARTHRITIS
     Dosage: 300 MG, INTRAVENOUS (SEE IMAGE)
     Route: 042
     Dates: start: 20010507
  11. REMICADE [Suspect]
     Indication: RHEUMATOID ARTHRITIS
     Dosage: 300 MG, INTRAVENOUS (SEE IMAGE)
     Route: 042
     Dates: start: 20010618
  12. REMICADE [Suspect]
     Indication: RHEUMATOID ARTHRITIS
     Dosage: 300 MG, INTRAVENOUS (SEE IMAGE)
     Route: 042
     Dates: start: 20010730
  13. REMICADE [Suspect]
     Indication: RHEUMATOID ARTHRITIS
     Dosage: 300 MG, INTRAVENOUS (SEE IMAGE)
     Route: 042
     Dates: start: 20010911
  14. REMICADE [Suspect]
     Indication: RHEUMATOID ARTHRITIS
     Dosage: 300 MG, INTRAVENOUS (SEE IMAGE)
     Route: 042
     Dates: start: 20011022
  15. REMICADE [Suspect]
     Indication: RHEUMATOID ARTHRITIS
     Dosage: 300 MG, INTRAVENOUS (SEE IMAGE)
     Route: 042
     Dates: start: 20011203
  16. REMICADE [Suspect]
     Indication: RHEUMATOID ARTHRITIS
     Dosage: 300 MG, INTRAVENOUS (SEE IMAGE)
     Route: 042
     Dates: start: 20020114
  17. REMICADE [Suspect]
     Indication: RHEUMATOID ARTHRITIS
     Dosage: 300 MG, INTRAVENOUS (SEE IMAGE)
     Route: 042
     Dates: start: 20020411
  18. METHOTREXATE [Concomitant]
  19. SYNTHROID [Concomitant]
  20. PREDNISONE [Concomitant]
  21. MIACALCIN [Concomitant]
  22. EVISTA [Concomitant]
  23. ALLEGRA [Concomitant]
  24. COSOPT [Concomitant]
  25. ULTRAM [Concomitant]
  26. FOLIC ACID [Concomitant]
  27. LEVOXYL [Concomitant]
  28. KENALOG [Concomitant]
  29. VIT E (TOCOPHEROL) [Concomitant]
  30. CALICUM [Concomitant]
  31. MULTI-VITAMINS [Concomitant]
  32. ESTER C (CALCIUM ASCORBATE) [Concomitant]
  33. CALCIUM CITRATE [Concomitant]
  34. VITAMIN D [Concomitant]

REACTIONS (6)
  - ABDOMINAL PAIN [None]
  - CONSTIPATION [None]
  - GASTROINTESTINAL DISORDER [None]
  - LUNG ADENOCARCINOMA [None]
  - METASTASES TO BONE [None]
  - METASTASES TO LIVER [None]
